FAERS Safety Report 8059945-6 (Version None)
Quarter: 2012Q1

REPORT INFORMATION
  Report Type: 
  Country: None (occurrence: None)
  Receive Date: 20120120
  Receipt Date: 20120112
  Transmission Date: 20120608
  Serious: Yes (Other)
  Sender: FDA-Public Use
  Company Number: PHEH2012US001120

PATIENT
  Sex: Male

DRUGS (2)
  1. FOCALIN [Suspect]
     Dosage: 30 MG, DAILY
  2. FOCALIN [Suspect]
     Dosage: 60 MG, DAILY

REACTIONS (4)
  - TARDIVE DYSKINESIA [None]
  - DYSTONIA [None]
  - GRIMACING [None]
  - LETHARGY [None]
